FAERS Safety Report 19932606 (Version 1)
Quarter: 2021Q4

REPORT INFORMATION
  Report Type: Other
  Country: US (occurrence: US)
  Receive Date: 20211008
  Receipt Date: 20211008
  Transmission Date: 20220303
  Serious: Yes (Death)
  Sender: FDA-Public Use
  Company Number: US-ROCHE-2929027

PATIENT
  Sex: Female

DRUGS (2)
  1. ROZLYTREK [Suspect]
     Active Substance: ENTRECTINIB
     Indication: Lung neoplasm malignant
     Dosage: 3 CAPSULES BY MOUTH.
     Route: 048
  2. ROZLYTREK [Suspect]
     Active Substance: ENTRECTINIB
     Dosage: TAKE 3 TABLET(S) BY MOUTH
     Route: 048

REACTIONS (1)
  - Death [Fatal]
